FAERS Safety Report 4723788-9 (Version None)
Quarter: 2005Q3

REPORT INFORMATION
  Report Type: 
  Country: None (occurrence: None)
  Receive Date: 20050722
  Receipt Date: 20050713
  Transmission Date: 20060218
  Serious: Yes (Hospitalization, Disabling)
  Sender: FDA-Public Use
  Company Number: 05-07-1191

PATIENT
  Age: 64 Year
  Sex: Female

DRUGS (5)
  1. TRAMADOL [Suspect]
     Dosage: 100MG ORAL
     Route: 048
     Dates: start: 20050612, end: 20050614
  2. METHYLDOPA [Concomitant]
  3. LERCANIDIPINE [Concomitant]
  4. FUROSEMIDE [Concomitant]
  5. AMITRIPTYLINE HCL [Concomitant]

REACTIONS (3)
  - HYPERHIDROSIS [None]
  - HYPOTENSION [None]
  - ILEUS PARALYTIC [None]
